FAERS Safety Report 6305617-5 (Version None)
Quarter: 2009Q3

REPORT INFORMATION
  Report Type: 
  Country: None (occurrence: None)
  Receive Date: 20090806
  Receipt Date: 20090723
  Transmission Date: 20100115
  Serious: Yes (Life-Threatening, Hospitalization)
  Sender: FDA-Public Use
  Company Number: 2009AL004911

PATIENT
  Age: 72 Year
  Sex: Female

DRUGS (7)
  1. ACYCLOVIR [Suspect]
     Dosage: 300 MG; TID; IV
     Route: 042
  2. LISINOPRIL [Concomitant]
  3. FOLIC ACID [Concomitant]
  4. ADCAL-D3 [Concomitant]
  5. ALENDRONIC ACID [Concomitant]
  6. PREDNISOLONE [Concomitant]
  7. AZATHIOPRINE [Concomitant]

REACTIONS (2)
  - DYSARTHRIA [None]
  - LEUKOENCEPHALOPATHY [None]
